FAERS Safety Report 8773577 (Version 1)
Quarter: 2012Q4

REPORT INFORMATION
  Report Type: 
  Country: ZA (occurrence: ZA)
  Receive Date: 20120907
  Receipt Date: 20120907
  Transmission Date: 20130627
  Serious: Yes (Other)
  Sender: FDA-Public Use
  Company Number: ZA-JNJFOC-20120901339

PATIENT
  Sex: Male

DRUGS (1)
  1. DORIBAX [Suspect]
     Indication: ABDOMINAL SEPSIS
     Route: 042

REACTIONS (1)
  - Pneumonia [Unknown]
